FAERS Safety Report 10592291 (Version 1)
Quarter: 2014Q4

REPORT INFORMATION
  Report Type: Spontaneous
  Country: IT (occurrence: None)
  Receive Date: 20141117
  Receipt Date: 20141117
  Transmission Date: 20150529
  Serious: Yes (Life-Threatening)
  Sender: FDA-Public Use
  Company Number: FK201405114

PATIENT
  Age: 68 Year
  Sex: Female

DRUGS (9)
  1. ALOXI (PALONOSETRON HYDROCHLORIDE) [Concomitant]
  2. XELODA [Concomitant]
     Active Substance: CAPECITABINE
  3. SOLDESAM (DEXAMETHASONE SODIUM PHOSPHATE) [Concomitant]
  4. ISOPTIN (VERAPAMIL HYDROCHLORIDE) [Concomitant]
  5. TRIATEC (RAMIPRIL) [Concomitant]
     Active Substance: RAMIPRIL
  6. OXALIPLATIN. [Suspect]
     Active Substance: OXALIPLATIN
     Indication: COLON CANCER
     Dosage: 190 MG, TOTAL, INTRAVENOUS (NOT SPECIFIED)
     Route: 042
     Dates: start: 20141030, end: 20141030
  7. ZANTAC [Concomitant]
     Active Substance: RANITIDINE HYDROCHLORIDE
  8. PANTORC (PANTOPRAZOLE SODIUM SESQUIHYDRATE) [Concomitant]
  9. TRIMETON (CHLORPHENAMINE MALEATE) [Concomitant]

REACTIONS (6)
  - Paraesthesia [None]
  - Drug hypersensitivity [None]
  - Dyspnoea [None]
  - Choking sensation [None]
  - Stridor [None]
  - Tachypnoea [None]

NARRATIVE: CASE EVENT DATE: 20141030
